FAERS Safety Report 4373733-3 (Version None)
Quarter: 2004Q2

REPORT INFORMATION
  Report Type: 
  Country: None (occurrence: None)
  Receive Date: 20040607
  Receipt Date: 20040607
  Transmission Date: 20050107
  Serious: Yes (Death)
  Sender: FDA-Public Use
  Company Number: None

PATIENT
  Age: 69 Year
  Sex: Male
  Weight: 86.1834 kg

DRUGS (2)
  1. AMIODARONE HCL [Suspect]
     Indication: ATRIAL FIBRILLATION
     Dosage: 200 MG QD
     Dates: start: 20030224, end: 20030617
  2. AMIODARONE HCL [Suspect]
     Dosage: 200 MG QD
     Dates: start: 20030618, end: 20040102

REACTIONS (6)
  - PHARYNGOLARYNGEAL PAIN [None]
  - PNEUMONIA [None]
  - PNEUMOPERICARDIUM [None]
  - PNEUMOPERITONEUM [None]
  - PULMONARY TOXICITY [None]
  - SUBCUTANEOUS EMPHYSEMA [None]
